FAERS Safety Report 4945150-6 (Version None)
Quarter: 2006Q1

REPORT INFORMATION
  Report Type: 
  Country: None (occurrence: None)
  Receive Date: 20060117
  Receipt Date: 20050125
  Transmission Date: 20060701
  Serious: Yes (Other)
  Sender: FDA-Public Use
  Company Number: A03200403584

PATIENT
  Age: 78 Year
  Sex: Female
  Weight: 68.0396 kg

DRUGS (8)
  1. PLAVIX [Suspect]
     Indication: ANGINA UNSTABLE
     Dosage: 75 MG QD - ORAL
     Route: 048
     Dates: start: 20040908, end: 20041001
  2. PLAVIX [Suspect]
     Indication: CHEST PAIN
     Dosage: 75 MG QD - ORAL
     Route: 048
     Dates: start: 20040908, end: 20041001
  3. PLAVIX [Suspect]
     Indication: STENT PLACEMENT
     Dosage: 75 MG QD - ORAL
     Route: 048
     Dates: start: 20040908, end: 20041001
  4. PLAVIX [Suspect]
     Indication: ANGINA UNSTABLE
     Dosage: 75 MG QD - ORAL
     Route: 048
     Dates: start: 20041028
  5. PLAVIX [Suspect]
     Indication: CHEST PAIN
     Dosage: 75 MG QD - ORAL
     Route: 048
     Dates: start: 20041028
  6. PLAVIX [Suspect]
     Indication: STENT PLACEMENT
     Dosage: 75 MG QD - ORAL
     Route: 048
     Dates: start: 20041028
  7. MACRODANTIN [Suspect]
     Indication: CYSTITIS
     Dosage: ORAL
     Route: 048
     Dates: start: 20040908, end: 20041001
  8. MACRODANTIN [Suspect]
     Indication: CYSTITIS
     Dosage: ORAL
     Route: 048
     Dates: start: 20041028, end: 20041028

REACTIONS (4)
  - CYSTITIS [None]
  - HEART RATE INCREASED [None]
  - MALAISE [None]
  - PNEUMONIA [None]
